FAERS Safety Report 8206377-3 (Version None)
Quarter: 2012Q1

REPORT INFORMATION
  Report Type: 
  Country: None (occurrence: None)
  Receive Date: 20120313
  Receipt Date: 20120308
  Transmission Date: 20120608
  Serious: Yes (Hospitalization)
  Sender: FDA-Public Use
  Company Number: PHHY2012IT020864

PATIENT
  Sex: Female

DRUGS (5)
  1. CIPROFLOXACIN HCL [Concomitant]
     Dosage: 250 MG, UNK
  2. VOLTAREN [Suspect]
     Indication: ARTHRALGIA
     Dosage: 2 DF, UNK
     Route: 030
     Dates: start: 20120129, end: 20120130
  3. NIMESULIDE [Concomitant]
  4. MUSCORIL [Suspect]
     Indication: ARTHRALGIA
     Dosage: 2 DF, UNK
     Route: 030
     Dates: start: 20120129, end: 20120130
  5. KETOPROFEN [Concomitant]
     Dosage: 80 MG, UNK
     Route: 048

REACTIONS (3)
  - THROAT TIGHTNESS [None]
  - FLUSHING [None]
  - URTICARIA [None]
